FAERS Safety Report 20145277 (Version 9)
Quarter: 2024Q2

REPORT INFORMATION
  Report Type: Spontaneous
  Country: IN (occurrence: IN)
  Receive Date: 20211203
  Receipt Date: 20240620
  Transmission Date: 20240716
  Serious: Yes (Other)
  Sender: FDA-Public Use
  Company Number: IN-PFIZER INC-2019164749

PATIENT
  Age: 53 Year
  Sex: Female

DRUGS (6)
  1. PALBOCICLIB [Suspect]
     Active Substance: PALBOCICLIB
     Indication: Breast cancer metastatic
     Dosage: FOR 21 DAYS/28 DAYS
     Route: 048
     Dates: start: 20190204
  2. PALBOCICLIB [Suspect]
     Active Substance: PALBOCICLIB
     Dosage: UNK
     Route: 048
  3. LETROZOLE [Suspect]
     Active Substance: LETROZOLE
     Indication: Breast cancer metastatic
     Dosage: 2.5 MG, 1X/DAY
  4. CALCIUM\CHOLECALCIFEROL [Concomitant]
     Active Substance: CALCIUM\CHOLECALCIFEROL
     Dosage: 500 MG, 1X/DAY
  5. PAN [Concomitant]
     Dosage: 40 1X DAY
  6. TAMOXIFEN CITRATE [Concomitant]
     Active Substance: TAMOXIFEN CITRATE
     Dosage: 20 MG, 1X/DAY (OD) X 2MONTHS

REACTIONS (11)
  - Diabetes mellitus [Unknown]
  - Accident [Unknown]
  - Lower limb fracture [Not Recovered/Not Resolved]
  - Malaise [Unknown]
  - Bone disorder [Unknown]
  - Cholelithiasis [Unknown]
  - Full blood count decreased [Unknown]
  - White blood cell count decreased [Unknown]
  - Asthenia [Unknown]
  - Off label use [Unknown]
  - Product use issue [Unknown]
